FAERS Safety Report 13987967 (Version 7)
Quarter: 2022Q4

REPORT INFORMATION
  Report Type: Spontaneous
  Country: US (occurrence: US)
  Receive Date: 20170919
  Receipt Date: 20221104
  Transmission Date: 20230112
  Serious: Yes (Other)
  Sender: FDA-Public Use
  Company Number: US-PFIZER INC-2017404513

PATIENT
  Age: 48 Year
  Sex: Female
  Weight: 77.11 kg

DRUGS (4)
  1. PREMARIN [Suspect]
     Active Substance: ESTROGENS, CONJUGATED
     Indication: Hysterectomy
     Dosage: 0.9 MG, 1X/DAY
     Route: 048
     Dates: start: 1996
  2. PREMARIN [Suspect]
     Active Substance: ESTROGENS, CONJUGATED
     Indication: Hot flush
  3. PREMARIN [Suspect]
     Active Substance: ESTROGENS, CONJUGATED
     Indication: Menopausal symptoms
  4. PREMARIN [Suspect]
     Active Substance: ESTROGENS, CONJUGATED
     Indication: Postmenopause

REACTIONS (4)
  - Back disorder [Unknown]
  - Illness [Unknown]
  - Pyrexia [Unknown]
  - Influenza [Unknown]
